FAERS Safety Report 4953463-7 (Version None)
Quarter: 2006Q1

REPORT INFORMATION
  Report Type: 
  Country: None (occurrence: None)
  Receive Date: 20060324
  Receipt Date: 20060221
  Transmission Date: 20060701
  Serious: Yes (Disabling, Other)
  Sender: FDA-Public Use
  Company Number: 2006UW03960

PATIENT
  Age: 62 Year
  Sex: Male

DRUGS (3)
  1. CRESTOR [Suspect]
     Route: 048
     Dates: start: 20040701, end: 20050101
  2. CRESTOR [Suspect]
     Route: 048
     Dates: start: 20050401
  3. LIPITOR [Suspect]
     Dates: end: 20050401

REACTIONS (1)
  - TENDON RUPTURE [None]
